FAERS Safety Report 13084666 (Version 1)
Quarter: 2017Q1

REPORT INFORMATION
  Report Type: Spontaneous
  Country: US (occurrence: US)
  Receive Date: 20170103
  Receipt Date: 20170103
  Transmission Date: 20170428
  Serious: No
  Sender: FDA-Public Use
  Company Number: None

PATIENT
  Age: 30 Year
  Sex: Male

DRUGS (1)
  1. HARVONI [Suspect]
     Active Substance: LEDIPASVIR\SOFOSBUVIR
     Indication: HEPATITIS C
     Route: 048
     Dates: start: 20161118, end: 20161230

REACTIONS (4)
  - Anxiety [None]
  - Psychotic disorder [None]
  - Headache [None]
  - Treatment noncompliance [None]

NARRATIVE: CASE EVENT DATE: 20161230
